FAERS Safety Report 5915423-9 (Version None)
Quarter: 2008Q4

REPORT INFORMATION
  Report Type: 
  Country: None (occurrence: None)
  Receive Date: 20081009
  Receipt Date: 20081009
  Transmission Date: 20090506
  Serious: No
  Sender: FDA-Public Use
  Company Number: None

PATIENT
  Age: 73 Year
  Sex: Female

DRUGS (10)
  1. CITALOPRAM HYDROBROMIDE [Suspect]
     Indication: DEPRESSION
     Dosage: 40MG DAILY
  2. FLUCONAZOLE [Concomitant]
  3. CLONAZEPAM [Concomitant]
  4. LEVOFLOXACIN [Concomitant]
  5. METOPROLOL TARTRATE [Concomitant]
  6. ACYCLOVIR SODIUM [Concomitant]
  7. VANCOMYCIN HYDROCHLORIDE [Concomitant]
  8. AMLODIPINE [Concomitant]
  9. VALSARTAN [Concomitant]
  10. PANTOPRAZOLE SODIUM [Concomitant]

REACTIONS (4)
  - DELIRIUM [None]
  - DISORIENTATION [None]
  - PYREXIA [None]
  - SOMNOLENCE [None]
